FAERS Safety Report 6409896-5 (Version None)
Quarter: 2009Q4

REPORT INFORMATION
  Report Type: 
  Country: None (occurrence: None)
  Receive Date: 20091022
  Receipt Date: 20090805
  Transmission Date: 20100525
  Serious: Yes (Other)
  Sender: FDA-Public Use
  Company Number: JP-JNJCH-2009019940

PATIENT
  Sex: Female

DRUGS (6)
  1. CETIRIZINE HYDROCHLORIDE [Suspect]
     Indication: RHINITIS ALLERGIC
     Dosage: TEXT:10 MG DAILY
     Route: 048
     Dates: start: 20090331, end: 20090525
  2. GALENIC/FLUTICASONE/SALMETEROL/ [Suspect]
     Indication: ASTHMA
     Dosage: TEXT:500 MCG
     Route: 055
     Dates: start: 20090331, end: 20090421
  3. GALENIC/FLUTICASONE/SALMETEROL/ [Suspect]
  4. THEOPHYLLINE [Suspect]
     Indication: BRONCHOSPASM
     Dosage: TEXT:200 MG DAILY
     Route: 048
     Dates: start: 20090312, end: 20090407
  5. CARBOCISTEINE [Suspect]
     Indication: PRODUCTIVE COUGH
     Dosage: TEXT:1500 MG DAILY
     Route: 048
     Dates: start: 20090312, end: 20090511
  6. CLARITHROMYCIN [Suspect]
     Indication: SINUSITIS
     Dosage: TEXT:200 MG DAILY
     Route: 048
     Dates: start: 20090317, end: 20090511

REACTIONS (1)
  - STOMATITIS [None]
